FAERS Safety Report 10163491 (Version 2)
Quarter: 2014Q2

REPORT INFORMATION
  Report Type: Spontaneous
  Country: FR (occurrence: FR)
  Receive Date: 20140509
  Receipt Date: 20140509
  Transmission Date: 20141212
  Serious: Yes (Other)
  Sender: FDA-Public Use
  Company Number: FR-ELI_LILLY_AND_COMPANY-FR201404000143

PATIENT
  Age: 50 Year
  Sex: Male
  Weight: 63 kg

DRUGS (6)
  1. ALIMTA [Suspect]
     Indication: NEOPLASM MALIGNANT
     Dosage: 500 MG/M2, CYCLICAL
     Route: 042
     Dates: start: 20140123, end: 20140327
  2. DEXAMETHASONE [Concomitant]
     Indication: PREMEDICATION
     Dosage: 4 MG, BID
  3. FOLIC ACID [Concomitant]
     Indication: PREMEDICATION
  4. VITAMIN B12 (CYANOCOBALAMIN AND ANALOGUES) [Concomitant]
     Indication: PREMEDICATION
     Route: 030
  5. OXYCONTIN [Concomitant]
     Indication: PAIN
     Dosage: 100 MG, BID
     Route: 048
     Dates: start: 201306
  6. OXYNORM [Concomitant]
     Indication: PAIN
     Dosage: 20 MG, PRN
     Route: 048
     Dates: start: 201306

REACTIONS (3)
  - Aspartate aminotransferase increased [Recovering/Resolving]
  - Alanine aminotransferase increased [Recovering/Resolving]
  - Gamma-glutamyltransferase increased [Recovering/Resolving]
